FAERS Safety Report 8351413-7 (Version None)
Quarter: 2012Q2

REPORT INFORMATION
  Report Type: 
  Country: None (occurrence: None)
  Receive Date: 20120510
  Receipt Date: 20120508
  Transmission Date: 20120825
  Serious: Yes (Life-Threatening)
  Sender: FDA-Public Use
  Company Number: CH-ROCHE-1067416

PATIENT
  Sex: Female
  Weight: 59 kg

DRUGS (11)
  1. VINCRISTINE [Suspect]
     Indication: ACUTE LEUKAEMIA
     Route: 042
     Dates: start: 20120203
  2. CYCLOPHOSPHAMIDE [Suspect]
     Indication: ACUTE LEUKAEMIA
     Route: 042
     Dates: start: 20120217, end: 20120219
  3. PREDNISONE [Suspect]
     Indication: ACUTE LEUKAEMIA
     Route: 048
     Dates: start: 20120203, end: 20120209
  4. MABTHERA [Suspect]
     Route: 042
     Dates: start: 20120209, end: 20120220
  5. FUROSEMIDE [Concomitant]
     Dosage: 160-200 MG
     Route: 042
     Dates: start: 20120214
  6. MABTHERA [Suspect]
     Indication: ACUTE LEUKAEMIA
     Route: 042
     Dates: start: 20120203, end: 20120203
  7. ASPARAGINASE [Suspect]
     Indication: ACUTE LEUKAEMIA
     Route: 042
     Dates: start: 20120210, end: 20120214
  8. MABTHERA [Suspect]
     Dates: start: 20120201
  9. DAUNORUBICIN HYDROCHLORIDE [Suspect]
     Indication: ACUTE LEUKAEMIA
     Route: 042
     Dates: start: 20120203, end: 20120205
  10. ESOMEPRAZOLE MAGNESIUM [Concomitant]
     Route: 048
     Dates: start: 20120203
  11. METOCLOPRAMIDE [Concomitant]
     Route: 042
     Dates: start: 20120203

REACTIONS (1)
  - CAPILLARY LEAK SYNDROME [None]
